FAERS Safety Report 6557514-8 (Version None)
Quarter: 2010Q1

REPORT INFORMATION
  Report Type: 
  Country: None (occurrence: None)
  Receive Date: 20100129
  Receipt Date: 20100119
  Transmission Date: 20100710
  Serious: Yes (Hospitalization, Other)
  Sender: FDA-Public Use
  Company Number: US-JNJFOC-20091204707

PATIENT
  Sex: Female
  Weight: 68.04 kg

DRUGS (11)
  1. REMICADE [Suspect]
     Indication: RHEUMATOID ARTHRITIS
     Dosage: (3 MG/KG)
     Route: 042
  2. REMICADE [Suspect]
     Dosage: (3 MG/KG)
     Route: 042
  3. REMICADE [Suspect]
     Dosage: (3 MG/KG)
     Route: 042
  4. METHOTREXATE [Concomitant]
  5. FOLIC ACID [Concomitant]
  6. HYDROCHLOROTHIAZIDE [Concomitant]
  7. IRON [Concomitant]
  8. SYNTHROID [Concomitant]
  9. TYLENOL-500 [Concomitant]
     Indication: PREMEDICATION
     Route: 048
  10. BENADRYL [Concomitant]
     Indication: PREMEDICATION
     Route: 048
  11. SOLU-CORTEF [Concomitant]
     Indication: PREMEDICATION
     Route: 042

REACTIONS (12)
  - BLOOD PRESSURE DECREASED [None]
  - COLD SWEAT [None]
  - DEPRESSED LEVEL OF CONSCIOUSNESS [None]
  - DYSPNOEA [None]
  - FEELING ABNORMAL [None]
  - FEELING COLD [None]
  - FLUSHING [None]
  - HEART RATE INCREASED [None]
  - INFUSION RELATED REACTION [None]
  - NAUSEA [None]
  - PALPITATIONS [None]
  - UNRESPONSIVE TO STIMULI [None]
